FAERS Safety Report 24541254 (Version 3)
Quarter: 2024Q4

REPORT INFORMATION
  Report Type: Report from Study
  Country: ES (occurrence: ES)
  Receive Date: 20241023
  Receipt Date: 20241114
  Transmission Date: 20250114
  Serious: Yes (Other)
  Sender: ABBVIE
  Company Number: ES-ABBVIE-5925014

PATIENT
  Age: 80 Year
  Sex: Female

DRUGS (6)
  1. CARBIDOPA\LEVODOPA [Suspect]
     Active Substance: CARBIDOPA\LEVODOPA
     Indication: Parkinson^s disease
     Route: 050
     Dates: start: 20191219, end: 20240904
  2. CARBIDOPA\LEVODOPA [Suspect]
     Active Substance: CARBIDOPA\LEVODOPA
  3. CARBIDOPA\LEVODOPA [Suspect]
     Active Substance: CARBIDOPA\LEVODOPA
     Indication: Parkinson^s disease
     Dosage: 240 MG/ML + 12 MG/ML SOLUCION PARA PERFUSION, LAST DOSE ADMINISTERED: SEP 2024
     Route: 058
     Dates: start: 20240904
  4. CARBIDOPA\LEVODOPA [Suspect]
     Active Substance: CARBIDOPA\LEVODOPA
     Dosage: REDUCTION IN A HIGH DOSE OF 0.01 ML/H, 240 MG/ML + 12 MG/ML SOLUCION PARA PERFUSION. LAST ADMIN D...
     Route: 058
     Dates: start: 202409
  5. CARBIDOPA\LEVODOPA [Suspect]
     Active Substance: CARBIDOPA\LEVODOPA
     Dosage: HIGH BASAL SPEED DURING DAY AND LOW SPEED DURING THE NIGHT.?FIRST ADMIN DATE 2024
     Route: 058
     Dates: end: 202410
  6. CARBIDOPA\LEVODOPA [Suspect]
     Active Substance: CARBIDOPA\LEVODOPA
     Dosage: ADJUSTS DOSAGE FIRST ADMIN OCT 2024
     Route: 050

REACTIONS (19)
  - Unresponsive to stimuli [Recovered/Resolved]
  - Psychomotor hyperactivity [Unknown]
  - Nervousness [Unknown]
  - Hallucination [Recovered/Resolved]
  - Urinary tract infection [Recovering/Resolving]
  - Motor dysfunction [Not Recovered/Not Resolved]
  - Dyskinesia [Recovered/Resolved]
  - Device issue [Unknown]
  - Somnolence [Not Recovered/Not Resolved]
  - Hallucination [Recovered/Resolved]
  - Bradykinesia [Not Recovered/Not Resolved]
  - Loss of personal independence in daily activities [Unknown]
  - Incoherent [Unknown]
  - Somnolence [Recovering/Resolving]
  - Delusion [Recovered/Resolved]
  - Therapeutic product effect incomplete [Unknown]
  - On and off phenomenon [Recovering/Resolving]
  - Device maintenance issue [Unknown]
  - Aggression [Unknown]

NARRATIVE: CASE EVENT DATE: 20240101
